FAERS Safety Report 9543596 (Version 1)
Quarter: 2013Q2

REPORT INFORMATION
  Report Type: Spontaneous
  Country: US (occurrence: None)
  Receive Date: 20130524
  Receipt Date: 20130524
  Transmission Date: 20140414
  Serious: Yes (Other)
  Sender: FDA-Public Use
  Company Number: PHEH2013US001548

PATIENT
  Sex: Female
  Weight: 101.6 kg

DRUGS (1)
  1. GILENYA [Suspect]
     Indication: MULTIPLE SCLEROSIS
     Route: 048
     Dates: start: 20111007

REACTIONS (3)
  - Decreased appetite [None]
  - Hepatic enzyme increased [None]
  - Weight decreased [None]
